FAERS Safety Report 7889544-8 (Version None)
Quarter: 2011Q4

REPORT INFORMATION
  Report Type: 
  Country: None (occurrence: None)
  Receive Date: 20111103
  Receipt Date: 20101101
  Transmission Date: 20120403
  Serious: No
  Sender: FDA-Public Use
  Company Number: US-BRISTOL-MYERS SQUIBB COMPANY-15361595

PATIENT
  Age: 54 Year
  Sex: Female

DRUGS (1)
  1. KENALOG-40 [Suspect]
     Indication: KELOID SCAR
     Dosage: TOOK 2 WEEKS AGO
     Route: 026

REACTIONS (5)
  - FATIGUE [None]
  - BLOOD GLUCOSE INCREASED [None]
  - CRYING [None]
  - TACHYCARDIA [None]
  - ANXIETY [None]
